FAERS Safety Report 17536598 (Version 1)
Quarter: 2020Q1

REPORT INFORMATION
  Report Type: Spontaneous
  Country: CN (occurrence: CN)
  Receive Date: 20200313
  Receipt Date: 20200313
  Transmission Date: 20200409
  Serious: Yes (Death)
  Sender: FDA-Public Use
  Company Number: CN-ROCHE-2566921

PATIENT
  Age: 64 Year
  Sex: Male

DRUGS (2)
  1. RALTITREXED [Concomitant]
     Active Substance: RALTITREXED
     Indication: LUNG ADENOCARCINOMA
     Route: 065
     Dates: start: 2019
  2. AVASTIN [Suspect]
     Active Substance: BEVACIZUMAB
     Indication: LUNG ADENOCARCINOMA
     Route: 065
     Dates: start: 2018, end: 2019

REACTIONS (1)
  - Respiratory failure [Fatal]

NARRATIVE: CASE EVENT DATE: 20200117
